FAERS Safety Report 9874626 (Version 1)
Quarter: 2014Q1

REPORT INFORMATION
  Report Type: Spontaneous
  Country: FR (occurrence: FR)
  Receive Date: 20140206
  Receipt Date: 20140206
  Transmission Date: 20141002
  Serious: Yes (Hospitalization)
  Sender: FDA-Public Use
  Company Number: PHHY2014FR011178

PATIENT
  Age: 57 Year
  Sex: Male

DRUGS (17)
  1. 5-FLUOROURACIL SANDOZ [Suspect]
     Indication: GASTRIC CANCER
     Dosage: 2200 MG, QD
     Route: 042
     Dates: start: 20130311, end: 20130312
  2. 5-FLUOROURACIL SANDOZ [Suspect]
     Dosage: 1700 MG,
     Dates: start: 20130220, end: 20130220
  3. EMEND [Suspect]
     Route: 048
     Dates: start: 20130311, end: 20130313
  4. EMEND [Suspect]
  5. DOCETAXEL HOSPIRA [Suspect]
     Indication: GASTRIC CANCER
     Dosage: 75 MG
     Dates: start: 20130220
  6. DOCETAXEL HOSPIRA [Suspect]
     Dosage: 74 MG
     Route: 042
     Dates: start: 20130311, end: 20130311
  7. ZOPHREN [Suspect]
     Route: 065
     Dates: start: 20130311, end: 20130313
  8. ZOPHREN [Suspect]
     Dates: start: 20130220, end: 20130227
  9. SOLUPRED [Suspect]
     Dosage: 60 MG
     Dates: start: 20130220, end: 20130222
  10. SOLUPRED [Suspect]
     Dosage: 60 MG
     Route: 065
     Dates: start: 20130311, end: 20130313
  11. CISPLATINE MYLAN [Concomitant]
     Indication: GASTRIC CANCER
     Dosage: 75 MG, QD
     Route: 042
     Dates: start: 20130222, end: 20130222
  12. KREDEX [Concomitant]
     Dosage: 12.5 MG, BID
     Route: 048
     Dates: start: 201302
  13. EUPANTOL [Concomitant]
     Dosage: 40 MG, BID
     Route: 048
  14. PRIMPERAN [Concomitant]
     Dosage: 10 MG,
     Route: 048
     Dates: start: 20130220
  15. KARDEGIC [Concomitant]
     Dosage: 75 MG, QD
     Route: 048
  16. TAHOR [Concomitant]
     Dosage: 10 MG, QD
     Route: 048
  17. TRIATEC [Concomitant]
     Dosage: 5 MG, QD
     Route: 048
     Dates: start: 201302

REACTIONS (1)
  - Encephalopathy [Recovered/Resolved]
